FAERS Safety Report 11230535 (Version 2)
Quarter: 2015Q3

REPORT INFORMATION
  Report Type: Spontaneous
  Country: US (occurrence: US)
  Receive Date: 20150701
  Receipt Date: 20150716
  Transmission Date: 20151125
  Serious: Yes (Other)
  Sender: FDA-Public Use
  Company Number: PHEH2015US012520

PATIENT
  Age: 4 Year
  Sex: Male

DRUGS (1)
  1. ILARIS [Suspect]
     Active Substance: CANAKINUMAB
     Indication: JUVENILE IDIOPATHIC ARTHRITIS
     Dosage: UNK (ONCE A MONTH)
     Route: 065
     Dates: start: 201503

REACTIONS (4)
  - Gastrointestinal infection [Recovering/Resolving]
  - Drug ineffective [Recovering/Resolving]
  - Juvenile idiopathic arthritis [Recovering/Resolving]
  - Condition aggravated [Recovering/Resolving]
